FAERS Safety Report 5286589-1 (Version None)
Quarter: 2007Q2

REPORT INFORMATION
  Report Type: 
  Country: None (occurrence: None)
  Receive Date: 20070404
  Receipt Date: 20070403
  Transmission Date: 20071010
  Serious: Yes (Life-Threatening, Hospitalization, Disabling, Other)
  Sender: FDA-Public Use
  Company Number: US-GLAXOSMITHKLINE-A0606798A

PATIENT
  Age: 38 Year
  Sex: Female

DRUGS (12)
  1. LAMICTAL [Suspect]
     Indication: BIPOLAR DISORDER
     Dosage: 25MG PER DAY
     Route: 048
     Dates: start: 20050801, end: 20050805
  2. AMOXICILLIN [Suspect]
  3. WELLBUTRIN [Concomitant]
  4. LEXAPRO [Concomitant]
  5. FOLATE [Concomitant]
  6. TYLENOL W/ CODEINE [Concomitant]
  7. ADVAIR DISKUS 100/50 [Concomitant]
  8. MONISTAT [Concomitant]
  9. BENADRYL [Concomitant]
  10. CHLORASEPTIC SPRAY [Concomitant]
  11. ATIVAN [Concomitant]
  12. AMBIEN [Concomitant]

REACTIONS (18)
  - BACK PAIN [None]
  - CONJUNCTIVITIS [None]
  - DYSPAREUNIA [None]
  - DYSURIA [None]
  - EYE DISORDER [None]
  - FUNGAL INFECTION [None]
  - GENITAL RASH [None]
  - INCORRECT DOSE ADMINISTERED [None]
  - OEDEMA GENITAL [None]
  - PHARYNGEAL OEDEMA [None]
  - RASH [None]
  - RASH PAPULAR [None]
  - SCAR [None]
  - SINUSITIS [None]
  - SKIN DISORDER [None]
  - STEVENS-JOHNSON SYNDROME [None]
  - VAGINAL DISCHARGE [None]
  - VAGINAL INFECTION [None]
